FAERS Safety Report 8259235-2 (Version None)
Quarter: 2012Q2

REPORT INFORMATION
  Report Type: 
  Country: None (occurrence: None)
  Receive Date: 20120404
  Receipt Date: 20120330
  Transmission Date: 20120825
  Serious: No
  Sender: FDA-Public Use
  Company Number: US-PFIZER INC-2012081799

PATIENT
  Sex: Male
  Weight: 95.238 kg

DRUGS (3)
  1. LIPITOR [Suspect]
     Indication: BLOOD CHOLESTEROL INCREASED
     Dosage: UNK
     Route: 048
     Dates: end: 20120101
  2. CALCIUM CARBONATE [Suspect]
     Indication: ABDOMINAL PAIN
     Dosage: UNK
     Dates: start: 20120301, end: 20120301
  3. GAS-X [Suspect]
     Indication: ABDOMINAL PAIN
     Dosage: UNK
     Dates: start: 20120301, end: 20120301

REACTIONS (4)
  - ARTHRALGIA [None]
  - FATIGUE [None]
  - ABDOMINAL PAIN [None]
  - DRUG INEFFECTIVE [None]
